FAERS Safety Report 11097858 (Version 1)
Quarter: 2015Q2

REPORT INFORMATION
  Report Type: Spontaneous
  Country: US (occurrence: US)
  Receive Date: 20150507
  Receipt Date: 20150507
  Transmission Date: 20150821
  Serious: No
  Sender: FDA-Public Use
  Company Number: US-PFIZER INC-2015150080

PATIENT
  Age: 31 Year
  Sex: Male
  Weight: 76.19 kg

DRUGS (2)
  1. TRIAMCINOLONE ACETONIDE. [Concomitant]
     Active Substance: TRIAMCINOLONE ACETONIDE
     Dosage: UNK
  2. GABAPENTIN. [Suspect]
     Active Substance: GABAPENTIN
     Dosage: 300 MG 1 CAPSULE IN AM, ONE CAPSULE IN PM AND 2 AT BED TIME
     Dates: start: 20150331

REACTIONS (4)
  - Arthralgia [Unknown]
  - Drug effect incomplete [Unknown]
  - Pruritus [Unknown]
  - Dry skin [Unknown]
